FAERS Safety Report 6178271-3 (Version None)
Quarter: 2009Q2

REPORT INFORMATION
  Report Type: 
  Country: None (occurrence: None)
  Receive Date: 20090504
  Receipt Date: 20090424
  Transmission Date: 20091009
  Serious: Yes (Other)
  Sender: FDA-Public Use
  Company Number: A0781899A

PATIENT
  Age: 36 Year
  Sex: Female

DRUGS (3)
  1. TYKERB [Suspect]
     Indication: BREAST CANCER
     Dosage: 1250MG PER DAY
     Route: 048
     Dates: start: 20080401
  2. CAPECITABINE [Suspect]
     Indication: BREAST CANCER
  3. CARBOPLATIN [Concomitant]
     Route: 042

REACTIONS (3)
  - BRADYPHRENIA [None]
  - DRUG TOXICITY [None]
  - HYDROCEPHALUS [None]
